FAERS Safety Report 5566435-9 (Version None)
Quarter: 2007Q4

REPORT INFORMATION
  Report Type: 
  Country: None (occurrence: None)
  Receive Date: 20071218
  Receipt Date: 20071218
  Transmission Date: 20080405
  Serious: Yes (Hospitalization, Other)
  Sender: FDA-Public Use
  Company Number: None

PATIENT
  Sex: Female
  Weight: 73.9363 kg

DRUGS (1)
  1. COLONCLENZ    450MG   BODY GOLD [Suspect]
     Indication: FAECES HARD
     Dosage: 450MG  1 PER 7 DAYS  PO
     Route: 048
     Dates: start: 20070217, end: 20071016

REACTIONS (1)
  - TRANSIENT ISCHAEMIC ATTACK [None]
